FAERS Safety Report 22623449 (Version 1)
Quarter: 2023Q2

REPORT INFORMATION
  Report Type: Spontaneous
  Country: US (occurrence: US)
  Receive Date: 20230621
  Receipt Date: 20230621
  Transmission Date: 20230721
  Serious: No
  Sender: FDA-Public Use
  Company Number: US-GLENMARK PHARMACEUTICALS-2022GMK073864

PATIENT

DRUGS (1)
  1. MOMETASONE FUROATE [Suspect]
     Active Substance: MOMETASONE FUROATE
     Indication: Eczema
     Dosage: UNK, ONCE DAILY FOR 7 DAYS, THEN 2 TIMES DAILY FOR ANOTHER 7 DAYS, AND AS NEEDED
     Route: 061

REACTIONS (1)
  - Product use issue [Unknown]
